FAERS Safety Report 23448661 (Version 3)
Quarter: 2024Q3

REPORT INFORMATION
  Report Type: Other
  Country: US (occurrence: US)
  Receive Date: 20240127
  Receipt Date: 20240731
  Transmission Date: 20241017
  Serious: No
  Sender: TRAVERE THERAPEUTICS
  Company Number: US-TRAVERE-2023TVT00925

PATIENT
  Age: 62 Year
  Sex: Male
  Weight: 58.97 kg

DRUGS (13)
  1. FILSPARI [Suspect]
     Active Substance: SPARSENTAN
     Indication: IgA nephropathy
     Route: 048
  2. FILSPARI [Suspect]
     Active Substance: SPARSENTAN
     Indication: Haematuria
     Dosage: 1 TABLET BY MOUTH?EXPIRY DATE: 31-AUG-2025
     Route: 048
     Dates: start: 20231117
  3. FILSPARI [Suspect]
     Active Substance: SPARSENTAN
     Indication: Chronic kidney disease
  4. FILSPARI [Suspect]
     Active Substance: SPARSENTAN
     Indication: Chronic kidney disease
  5. FILSPARI [Suspect]
     Active Substance: SPARSENTAN
     Indication: Chronic kidney disease
  6. ALLOPURINOL [Concomitant]
     Active Substance: ALLOPURINOL
  7. ASPIRIN [Concomitant]
     Active Substance: ASPIRIN
  8. CALCIUM CARBONATE [Concomitant]
     Active Substance: CALCIUM CARBONATE
  9. CLARITIN-D 12 HOUR [Concomitant]
     Active Substance: LORATADINE\PSEUDOEPHEDRINE SULFATE
  10. CYCLOBENZAPRINE HYDROCHLORIDE [Concomitant]
     Active Substance: CYCLOBENZAPRINE HYDROCHLORIDE
  11. FISH OIL [Concomitant]
     Active Substance: FISH OIL
  12. PREDNISONE [Concomitant]
     Active Substance: PREDNISONE
  13. VITAMIN D3 [Concomitant]
     Active Substance: CHOLECALCIFEROL

REACTIONS (3)
  - Gout [Unknown]
  - Pollakiuria [Unknown]
  - Fatigue [Unknown]

NARRATIVE: CASE EVENT DATE: 20240101
